FAERS Safety Report 24135638 (Version 1)
Quarter: 2024Q3

REPORT INFORMATION
  Report Type: Spontaneous
  Country: US (occurrence: US)
  Receive Date: 20240725
  Receipt Date: 20240725
  Transmission Date: 20241017
  Serious: Yes (Disabling, Other)
  Sender: ZYDUS PHARM
  Company Number: US-CADILA HEALTHCARE LIMITED-US-ZYDUS-109755

PATIENT

DRUGS (2)
  1. DOXYCYCLINE [Suspect]
     Active Substance: DOXYCYCLINE\DOXYCYCLINE HYCLATE
     Indication: Q fever
     Dosage: 100 MILLIGRAM, BID
     Route: 065
  2. HYDROXYCHLOROQUINE [Suspect]
     Active Substance: HYDROXYCHLOROQUINE
     Indication: Q fever
     Dosage: 200 MILLIGRAM, TID
     Route: 065

REACTIONS (3)
  - Tinnitus [Unknown]
  - Deafness [Unknown]
  - Headache [Unknown]
